FAERS Safety Report 23548600 (Version 2)
Quarter: 2024Q1

REPORT INFORMATION
  Report Type: Report from Study
  Country: CA (occurrence: CA)
  Receive Date: 20240221
  Receipt Date: 20240308
  Transmission Date: 20240409
  Serious: Yes (Hospitalization, Other)
  Sender: FDA-Public Use
  Company Number: CA-FERRINGPH-2023FE05996

PATIENT

DRUGS (2)
  1. DEGARELIX [Suspect]
     Active Substance: DEGARELIX
     Indication: Hormone-dependent prostate cancer
     Dosage: 80 MG, MONTHLY
     Route: 058
     Dates: start: 20231207
  2. DEGARELIX [Suspect]
     Active Substance: DEGARELIX
     Dosage: 240 MG, ONCE/SINGLE
     Route: 058
     Dates: start: 20231013

REACTIONS (5)
  - Carotid artery stenosis [Unknown]
  - Pulmonary embolism [Recovering/Resolving]
  - COVID-19 [Recovered/Resolved]
  - Product use issue [Recovered/Resolved]
  - Product use issue [Recovered/Resolved]

NARRATIVE: CASE EVENT DATE: 20231207
